FAERS Safety Report 22596159 (Version 3)
Quarter: 2024Q1

REPORT INFORMATION
  Report Type: Report from Study
  Country: US (occurrence: US)
  Receive Date: 20230613
  Receipt Date: 20240123
  Transmission Date: 20240410
  Serious: Yes (Other)
  Sender: FDA-Public Use
  Company Number: US-002147023-NVSC2023US135032

PATIENT
  Sex: Female
  Weight: 104.33 kg

DRUGS (1)
  1. COSENTYX [Suspect]
     Active Substance: SECUKINUMAB
     Indication: Psoriasis
     Dosage: 300 MG/KG, QMO (ONCE A MONTH)
     Route: 058
     Dates: start: 20230301, end: 20240119

REACTIONS (2)
  - Dementia [Unknown]
  - Drug ineffective [Unknown]
